FAERS Safety Report 16508633 (Version 1)
Quarter: 2019Q3

REPORT INFORMATION
  Report Type: Spontaneous
  Country: US (occurrence: US)
  Receive Date: 20190702
  Receipt Date: 20190702
  Transmission Date: 20191004
  Serious: No
  Sender: FDA-Public Use
  Company Number: US-ROCHE-2169446

PATIENT
  Sex: Female

DRUGS (1)
  1. XELODA [Suspect]
     Active Substance: CAPECITABINE
     Indication: PRODUCT USED FOR UNKNOWN INDICATION
     Dosage: 1 MONTH
     Route: 065

REACTIONS (6)
  - Rash [Unknown]
  - Fatigue [Unknown]
  - Dry skin [Unknown]
  - Arthralgia [Unknown]
  - Onychomadesis [Unknown]
  - Bone pain [Unknown]
